FAERS Safety Report 5905139-7 (Version None)
Quarter: 2008Q4

REPORT INFORMATION
  Report Type: 
  Country: None (occurrence: None)
  Receive Date: 20081001
  Receipt Date: 20080926
  Transmission Date: 20090506
  Serious: Yes (Death, Other)
  Sender: FDA-Public Use
  Company Number: US-BAXTER-2008BH010166

PATIENT
  Sex: Male

DRUGS (1)
  1. HEPARIN SODIUM INJECTION [Suspect]
     Indication: DRUG USE FOR UNKNOWN INDICATION
     Dosage: DOSE UNIT:UNKNOWN
     Route: 065
     Dates: start: 20060927, end: 20060927

REACTIONS (5)
  - ACUTE MYOCARDIAL INFARCTION [None]
  - CENTRAL VENOUS PRESSURE INCREASED [None]
  - DEATH [None]
  - ELECTROCARDIOGRAM CHANGE [None]
  - HYPOTENSION [None]
